FAERS Safety Report 20584460 (Version 1)
Quarter: 2022Q1

REPORT INFORMATION
  Report Type: Spontaneous
  Country: CN (occurrence: CN)
  Receive Date: 20220311
  Receipt Date: 20220311
  Transmission Date: 20220424
  Serious: Yes (Other)
  Sender: FDA-Public Use
  Company Number: CN-009507513-2203CHN002104

PATIENT
  Age: 75 Year
  Sex: Male
  Weight: 48 kg

DRUGS (2)
  1. CILASTATIN SODIUM\IMIPENEM [Suspect]
     Active Substance: CILASTATIN SODIUM\IMIPENEM
     Indication: Chronic obstructive pulmonary disease
     Dosage: 1 GRAM, Q8H
     Route: 041
     Dates: start: 20220212, end: 20220225
  2. SODIUM CHLORIDE [Concomitant]
     Active Substance: SODIUM CHLORIDE
     Indication: Medication dilution
     Dosage: 100 MILLILITER, Q8H
     Route: 041
     Dates: start: 20220212, end: 20220225

REACTIONS (1)
  - Delirium [Recovering/Resolving]

NARRATIVE: CASE EVENT DATE: 20220225
